FAERS Safety Report 15804922 (Version 1)
Quarter: 2019Q1

REPORT INFORMATION
  Report Type: Report from Study
  Country: IT (occurrence: IT)
  Receive Date: 20190110
  Receipt Date: 20190110
  Transmission Date: 20190417
  Serious: Yes (Other)
  Sender: FDA-Public Use
  Company Number: IT-TEVA-2019-IT-996859

PATIENT
  Age: 60 Year
  Sex: Male
  Weight: 84 kg

DRUGS (4)
  1. FLUOROURACILE TEVA 5 G/100 ML SOLUZIONE PER INFUSIONE [Suspect]
     Active Substance: FLUOROURACIL
     Indication: OESOPHAGEAL ADENOCARCINOMA
     Dates: start: 20180829
  2. CALCIO LEVOFOLINATO TEVA 175 MG POLVERE PER SOLUZIONE PER INFUSIONE [Concomitant]
     Active Substance: LEVOLEUCOVORIN CALCIUM
     Indication: OESOPHAGEAL ADENOCARCINOMA
     Dates: start: 20180829
  3. TAXOTERE [Suspect]
     Active Substance: DOCETAXEL
     Indication: OESOPHAGEAL ADENOCARCINOMA
     Dates: start: 20180829
  4. ELOXATIN [Suspect]
     Active Substance: OXALIPLATIN
     Indication: OESOPHAGEAL ADENOCARCINOMA
     Dates: start: 20180829

REACTIONS (2)
  - Leukopenia [Recovering/Resolving]
  - Neutropenia [Recovering/Resolving]

NARRATIVE: CASE EVENT DATE: 20180928
